FAERS Safety Report 4645081-5 (Version None)
Quarter: 2005Q2

REPORT INFORMATION
  Report Type: 
  Country: None (occurrence: None)
  Receive Date: 20050422
  Receipt Date: 20050414
  Transmission Date: 20051028
  Serious: Yes (Other)
  Sender: FDA-Public Use
  Company Number: 2005059933

PATIENT
  Sex: Female

DRUGS (6)
  1. LIPITOR [Suspect]
     Indication: ILL-DEFINED DISORDER
  2. DOCUSATE SODIUM (DOCUSATE SODIUM) [Suspect]
     Indication: ILL-DEFINED DISORDER
  3. FERROUS SULFATE TAB [Suspect]
     Indication: ILL-DEFINED DISORDER
  4. WARFARIN SODIUM [Suspect]
     Indication: ILL-DEFINED DISORDER
  5. RABEPRAZOLE SODIUM [Concomitant]
  6. TOLTERODINE TARTRATE [Concomitant]

REACTIONS (3)
  - DRY MOUTH [None]
  - KNEE ARTHROPLASTY [None]
  - MALAISE [None]
